FAERS Safety Report 9469807 (Version 1)
Quarter: 2013Q3

REPORT INFORMATION
  Report Type: Spontaneous
  Country: US (occurrence: None)
  Receive Date: 20130820
  Receipt Date: 20130820
  Transmission Date: 20140515
  Serious: No
  Sender: FDA-Public Use
  Company Number: None

PATIENT
  Age: 57 Year
  Sex: Male

DRUGS (2)
  1. NAPROXEN [Suspect]
     Indication: ARTHRITIS
     Dosage: ONE DOSE ON EACH DAY TABLET BID BY MOUTH
     Route: 048
     Dates: start: 20130729, end: 20130730
  2. NAPROXEN [Suspect]
     Indication: ARTHRITIS
     Dosage: ONE DOSE ON EACH DAY TABLET BID BY MOUTH
     Route: 048
     Dates: start: 20130729, end: 20130730

REACTIONS (1)
  - Vertigo [None]
